FAERS Safety Report 18945161 (Version 1)
Quarter: 2021Q1

REPORT INFORMATION
  Report Type: Spontaneous
  Country: AU (occurrence: AU)
  Receive Date: 20210226
  Receipt Date: 20210226
  Transmission Date: 20210420
  Serious: Yes (Hospitalization, Other)
  Sender: FDA-Public Use
  Company Number: AU-BAYER-2021-070470

PATIENT
  Age: 54 Year
  Sex: Female
  Weight: 80 kg

DRUGS (1)
  1. PRIMOVIST [Suspect]
     Active Substance: GADOXETATE DISODIUM
     Indication: MAGNETIC RESONANCE IMAGING
     Dosage: 9.5 ML, ONCE
     Route: 042
     Dates: start: 20210216, end: 20210216

REACTIONS (6)
  - Erythema [Recovered/Resolved]
  - Oral discomfort [Recovered/Resolved]
  - Dyspnoea [Recovered/Resolved]
  - Salivary hypersecretion [Recovered/Resolved]
  - Respiratory distress [Recovered/Resolved]
  - Bradycardia [Recovered/Resolved]

NARRATIVE: CASE EVENT DATE: 20210216
